FAERS Safety Report 7222656-0 (Version None)
Quarter: 2011Q1

REPORT INFORMATION
  Report Type: 
  Country: None (occurrence: None)
  Receive Date: 20110112
  Receipt Date: 20101130
  Transmission Date: 20110831
  Serious: Yes (Hospitalization, Other)
  Sender: FDA-Public Use
  Company Number: US-BAXTER-2010BH021623

PATIENT
  Age: 41 Year
  Sex: Male
  Weight: 87 kg

DRUGS (6)
  1. PLAVIX [Concomitant]
     Indication: PRODUCT USED FOR UNKNOWN INDICATION
     Route: 065
  2. HEPARIN SODIUM INJECTION [Suspect]
     Route: 065
     Dates: start: 20080901
  3. NIASPAN [Concomitant]
     Indication: PRODUCT USED FOR UNKNOWN INDICATION
     Route: 065
  4. COREG [Concomitant]
     Indication: PRODUCT USED FOR UNKNOWN INDICATION
     Route: 065
  5. CENTRUM [Concomitant]
     Indication: PRODUCT USED FOR UNKNOWN INDICATION
     Route: 065
  6. HEPARIN SODIUM INJECTION [Suspect]
     Indication: CENTRAL VENOUS CATHETERISATION
     Route: 040
     Dates: start: 20080831

REACTIONS (10)
  - PARALYSIS [None]
  - BLOOD PRESSURE DECREASED [None]
  - BLINDNESS [None]
  - ANAEMIA [None]
  - HAEMORRHAGE [None]
  - ANOXIA [None]
  - CARDIOGENIC SHOCK [None]
  - CATHETER SITE HAEMATOMA [None]
  - COMPARTMENT SYNDROME [None]
  - HYPOTENSION [None]
